FAERS Safety Report 22635164 (Version 1)
Quarter: 2023Q2

REPORT INFORMATION
  Report Type: Spontaneous
  Country: DE (occurrence: DE)
  Receive Date: 20230623
  Receipt Date: 20230623
  Transmission Date: 20230722
  Serious: Yes (Disabling)
  Sender: FDA-Public Use
  Company Number: DE-CADRBFARM-2023317138

PATIENT
  Age: 22 Year
  Sex: Male
  Weight: 70 kg

DRUGS (2)
  1. SERTRALINE [Suspect]
     Active Substance: SERTRALINE HYDROCHLORIDE
     Indication: Depression
     Dosage: 50 MILLIGRAM
     Route: 048
     Dates: end: 20120801
  2. SERTRALINE [Suspect]
     Active Substance: SERTRALINE HYDROCHLORIDE
     Dosage: 50 MILLIGRAM
     Route: 048
     Dates: start: 20100401, end: 20171001

REACTIONS (4)
  - Sexual dysfunction [Recovered/Resolved with Sequelae]
  - Premature ejaculation [Recovered/Resolved with Sequelae]
  - Genital hypoaesthesia [Recovered/Resolved with Sequelae]
  - Loss of libido [Recovered/Resolved with Sequelae]

NARRATIVE: CASE EVENT DATE: 20100401
